FAERS Safety Report 19509879 (Version 2)
Quarter: 2022Q3

REPORT INFORMATION
  Report Type: Report from Study
  Country: AU (occurrence: AU)
  Receive Date: 20210708
  Receipt Date: 20220728
  Transmission Date: 20221027
  Serious: Yes (Hospitalization)
  Sender: FDA-Public Use
  Company Number: AU-NOVARTISPH-NVSC2021AU028805

PATIENT
  Age: 60 Year
  Sex: Female

DRUGS (3)
  1. MAYZENT [Suspect]
     Active Substance: SIPONIMOD
     Indication: Secondary progressive multiple sclerosis
     Dosage: UNK UNK, QD
     Route: 048
     Dates: start: 20210201
  2. MAYZENT [Suspect]
     Active Substance: SIPONIMOD
     Dosage: 1 MG, QD
     Route: 048
  3. MAYZENT [Suspect]
     Active Substance: SIPONIMOD
     Dosage: 1 MG ( 3 X PER WEEK ON MONDAY, WEDNESDAY AND FRIDAY
     Route: 048

REACTIONS (12)
  - Dyspnoea [Unknown]
  - Muscular weakness [Unknown]
  - Joint swelling [Unknown]
  - Confusional state [Unknown]
  - Movement disorder [Unknown]
  - Rhinovirus infection [Unknown]
  - Oedema [Unknown]
  - Gait disturbance [Unknown]
  - Muscle spasms [Unknown]
  - Pain in extremity [Unknown]
  - Fatigue [Unknown]
  - Lymphocyte count decreased [Unknown]

NARRATIVE: CASE EVENT DATE: 20210201
